FAERS Safety Report 10694199 (Version 3)
Quarter: 2015Q1

REPORT INFORMATION
  Report Type: Spontaneous
  Country: US (occurrence: US)
  Receive Date: 20150106
  Receipt Date: 20150220
  Transmission Date: 20150721
  Serious: Yes (Hospitalization, Other)
  Sender: FDA-Public Use
  Company Number: US-MERCK-1412USA013839

PATIENT
  Sex: Female

DRUGS (3)
  1. ZOLINZA [Suspect]
     Active Substance: VORINOSTAT
     Dosage: LIQUID PRESENTATION (DOSE AND DATES UNSPECIFIED)
     Route: 050
     Dates: end: 20141228
  2. ZOLINZA [Suspect]
     Active Substance: VORINOSTAT
     Dosage: 400 MG, DAILY
     Route: 048
  3. ANTIMICROBIAL (UNSPECIFIED) [Concomitant]
     Active Substance: UNSPECIFIED INGREDIENT

REACTIONS (5)
  - Breast cancer stage IV [Unknown]
  - Gastrointestinal haemorrhage [Unknown]
  - Dysphagia [Unknown]
  - Adverse event [Unknown]
  - Wrong technique in drug usage process [Unknown]

NARRATIVE: CASE EVENT DATE: 201412
